FAERS Safety Report 4551068-3 (Version None)
Quarter: 2005Q1

REPORT INFORMATION
  Report Type: 
  Country: None (occurrence: None)
  Receive Date: 20050110
  Receipt Date: 20041230
  Transmission Date: 20050727
  Serious: Yes (Other)
  Sender: FDA-Public Use
  Company Number: S04-USA-08057-01

PATIENT
  Age: 61 Year
  Sex: Male

DRUGS (8)
  1. AEROBID [Suspect]
     Indication: ASTHMA
     Dosage: 1 PUFF BID IH
     Route: 055
     Dates: start: 20041109, end: 20041129
  2. AEROBID [Suspect]
     Indication: ASTHMA
     Dosage: 1 PUFF TID IH
     Route: 055
     Dates: start: 20041130, end: 20041229
  3. ALBUTEROL [Concomitant]
  4. THEOPHYLLINE [Concomitant]
  5. DILTIAZEM [Concomitant]
  6. ATENOLOL [Concomitant]
  7. ISOSORBIDE [Concomitant]
  8. LISINOPRIL [Concomitant]

REACTIONS (6)
  - ASTHENIA [None]
  - CHRONIC OBSTRUCTIVE PULMONARY DISEASE [None]
  - EMOTIONAL DISTRESS [None]
  - PNEUMONIA [None]
  - SINUSITIS [None]
  - TREATMENT NONCOMPLIANCE [None]
